FAERS Safety Report 9972644 (Version 1)
Quarter: 2014Q1

REPORT INFORMATION
  Report Type: Report from Study
  Country: US (occurrence: US)
  Receive Date: 20140306
  Receipt Date: 20140306
  Transmission Date: 20141002
  Serious: No
  Sender: FDA-Public Use
  Company Number: US-ABBVIE-13P-163-1154347-00

PATIENT
  Age: 52 Year
  Sex: Female

DRUGS (9)
  1. HUMIRA [Suspect]
     Indication: COLITIS ULCERATIVE
     Dates: start: 20130806, end: 20130806
  2. HUMIRA [Suspect]
     Dosage: LOADING DOSE
     Dates: start: 20130820, end: 20130820
  3. HUMIRA [Suspect]
  4. PREDNISONE [Suspect]
     Indication: PRODUCT USED FOR UNKNOWN INDICATION
  5. IMURAN [Concomitant]
     Indication: PRODUCT USED FOR UNKNOWN INDICATION
  6. DICYCLOMINE [Concomitant]
     Indication: PAIN
  7. VALIUM [Concomitant]
     Indication: PRODUCT USED FOR UNKNOWN INDICATION
  8. AMBIEN [Concomitant]
     Indication: INSOMNIA
     Dosage: AT NIGHT
  9. PHENERGAN [Concomitant]
     Indication: NAUSEA

REACTIONS (7)
  - Insomnia [Recovering/Resolving]
  - Injection site pain [Recovering/Resolving]
  - Injection site pain [Recovering/Resolving]
  - Injection site bruising [Recovering/Resolving]
  - Injection site bruising [Recovering/Resolving]
  - Injection site pain [Recovering/Resolving]
  - Injection site warmth [Recovering/Resolving]
